FAERS Safety Report 19481211 (Version 1)
Quarter: 2021Q3

REPORT INFORMATION
  Report Type: Spontaneous
  Country: FR (occurrence: FR)
  Receive Date: 20210701
  Receipt Date: 20210701
  Transmission Date: 20211014
  Serious: Yes (Death, Other)
  Sender: FDA-Public Use
  Company Number: FR-AUROBINDO-AUR-APL-2021-027579

PATIENT
  Age: 68 Year
  Sex: Female
  Weight: 53 kg

DRUGS (3)
  1. FUROSEMIDE. [Suspect]
     Active Substance: FUROSEMIDE
     Indication: PRODUCT USED FOR UNKNOWN INDICATION
     Dosage: 100 MILLIGRAM
     Route: 048
     Dates: start: 202103
  2. NAVELBINE [Suspect]
     Active Substance: VINORELBINE TARTRATE
     Indication: SQUAMOUS CELL CARCINOMA OF LUNG
     Dosage: 30 MILLIGRAM/SQ. METER
     Route: 042
     Dates: start: 20210427
  3. CISPLATINE [Suspect]
     Active Substance: CISPLATIN
     Indication: SQUAMOUS CELL CARCINOMA OF LUNG
     Dosage: 80 MILLIGRAM/SQ. METER
     Route: 041
     Dates: start: 20210427

REACTIONS (2)
  - Bone marrow failure [Fatal]
  - Renal tubular necrosis [Fatal]

NARRATIVE: CASE EVENT DATE: 202105
